FAERS Safety Report 19957166 (Version 2)
Quarter: 2021Q4

REPORT INFORMATION
  Report Type: Spontaneous
  Country: GB (occurrence: GB)
  Receive Date: 20211014
  Receipt Date: 20211019
  Transmission Date: 20220303
  Serious: Yes (Death, Hospitalization, Other)
  Sender: FDA-Public Use
  Company Number: GB-ABBVIE-21K-167-4117160-00

PATIENT
  Age: 1 Year
  Sex: Female

DRUGS (1)
  1. VALPROATE SODIUM [Suspect]
     Active Substance: VALPROATE SODIUM
     Indication: Seizure
     Route: 065

REACTIONS (7)
  - Pancreatitis haemorrhagic [Fatal]
  - Abdominal distension [Fatal]
  - Peripheral circulatory failure [Fatal]
  - Gastrointestinal necrosis [Fatal]
  - Somnolence [Unknown]
  - Decreased appetite [Unknown]
  - Vomiting [Unknown]
